FAERS Safety Report 15801997 (Version 1)
Quarter: 2019Q1

REPORT INFORMATION
  Report Type: Spontaneous
  Country: US (occurrence: US)
  Receive Date: 20190108
  Receipt Date: 20190108
  Transmission Date: 20190417
  Serious: Yes (Death)
  Sender: FDA-Public Use
  Company Number: None

PATIENT
  Sex: Male
  Weight: 99 kg

DRUGS (2)
  1. TRESIBA [Suspect]
     Active Substance: INSULIN DEGLUDEC
     Indication: DIABETES MELLITUS
     Route: 030
     Dates: start: 20170901, end: 20180218
  2. ADVIL [Concomitant]
     Active Substance: IBUPROFEN

REACTIONS (5)
  - Myocardial infarction [None]
  - Facial pain [None]
  - Swelling face [None]
  - Unresponsive to stimuli [None]
  - Sudden death [None]
